FAERS Safety Report 4567131-7 (Version None)
Quarter: 2005Q1

REPORT INFORMATION
  Report Type: 
  Country: None (occurrence: None)
  Receive Date: 20050201
  Receipt Date: 20050125
  Transmission Date: 20050727
  Serious: Yes (Death)
  Sender: FDA-Public Use
  Company Number: US-JNJFOC-20050106819

PATIENT
  Age: 81 Year
  Sex: Male

DRUGS (13)
  1. LEVAQUIN [Suspect]
     Route: 042
     Dates: start: 20030418, end: 20030425
  2. COUMADIN [Interacting]
     Indication: UNEVALUABLE EVENT
  3. SOLU-MEDROL [Concomitant]
     Route: 042
  4. ALBUTEROL [Concomitant]
  5. CARDIZEM [Concomitant]
  6. HUMABID [Concomitant]
  7. MAGNESIUM OXIDE [Concomitant]
  8. KADUR [Concomitant]
  9. CLONADINE [Concomitant]
  10. PREDNISONE [Concomitant]
  11. PHENERGAN [Concomitant]
  12. ATIVAN [Concomitant]
  13. PROTONIX [Concomitant]

REACTIONS (3)
  - DRUG INTERACTION [None]
  - GASTROINTESTINAL HAEMORRHAGE [None]
  - PROTHROMBIN TIME PROLONGED [None]
